FAERS Safety Report 8901958 (Version 1)
Quarter: 2012Q4

REPORT INFORMATION
  Report Type: 
  Country: US (occurrence: US)
  Receive Date: 20121112
  Receipt Date: 20121112
  Transmission Date: 20130627
  Serious: Yes (Hospitalization)
  Sender: FDA-Public Use
  Company Number: US-BAYER-2012-116069

PATIENT
  Age: 31 Year
  Sex: Female
  Weight: 107 kg

DRUGS (14)
  1. YASMIN [Suspect]
  2. DICYCLOMINE [Concomitant]
     Dosage: 10 mg, TID
  3. IBUPROFEN [Concomitant]
     Dosage: 800 mg, UNK
  4. HYDROCODONE/ACETAMINOPHEN [Concomitant]
     Dosage: 7.5-750 mg Q4h (every 4 hours)
  5. PROPOXYPHENE NAPSYLATE W/ACETAMINOPHENE [Concomitant]
     Dosage: 100-650 mg
  6. SINGULAIR [Concomitant]
     Dosage: 10 mg, daily
     Route: 048
  7. ALBUTEROL [Concomitant]
     Dosage: 90 ?g, UNK
     Route: 045
  8. RHINOCORT AQUA [Concomitant]
     Dosage: One spray each nostril bid
  9. ALAVERT [Concomitant]
     Dosage: One table daily
     Route: 048
  10. MULTIVITAMIN [Concomitant]
     Dosage: One capsule daily
     Route: 048
  11. ZOFRAN [Concomitant]
  12. TORADOL [Concomitant]
  13. NITROGLYCERIN [Concomitant]
  14. NIFEREX [Concomitant]

REACTIONS (1)
  - Pulmonary embolism [None]
